FAERS Safety Report 7754447-6 (Version None)
Quarter: 2011Q3

REPORT INFORMATION
  Report Type: 
  Country: None (occurrence: None)
  Receive Date: 20110915
  Receipt Date: 20110831
  Transmission Date: 20111222
  Serious: Yes (Other)
  Sender: FDA-Public Use
  Company Number: BR-NOVOPROD-333460

PATIENT

DRUGS (9)
  1. COLECALCIFEROL [Concomitant]
     Indication: HYPOVITAMINOSIS
     Dosage: 2000 U, QD
  2. VICTOZA [Suspect]
     Dosage: UNK
     Route: 058
     Dates: end: 20110730
  3. FLUOXETINE [Concomitant]
     Indication: BIPOLAR DISORDER
     Dosage: 40 MG, QD
  4. PROGESTERONE [Concomitant]
     Indication: MENOPAUSE
     Dosage: 200 MG,12 DAYS IN A MONTH
  5. CARBOLITIUM [Concomitant]
     Indication: BIPOLAR DISORDER
     Dosage: 450 MG, BID
  6. SPIRONOLACTONE [Concomitant]
     Indication: HYPERANDROGENISM
     Dosage: 200 MG, QD
  7. ESTREVA [Concomitant]
     Indication: MENOPAUSE
     Dosage: 1.5 MG, QD
  8. VICTOZA [Suspect]
     Indication: TYPE 2 DIABETES MELLITUS
     Dosage: 1.2 MG, QD
     Route: 058
     Dates: start: 20110613, end: 20110730
  9. CLONAZEPAM [Concomitant]
     Indication: BIPOLAR DISORDER
     Dosage: 2 MG, QD

REACTIONS (1)
  - OESOPHAGITIS [None]
